FAERS Safety Report 6788418-3 (Version None)
Quarter: 2010Q2

REPORT INFORMATION
  Report Type: 
  Country: None (occurrence: None)
  Receive Date: 20100623
  Receipt Date: 20080310
  Transmission Date: 20101027
  Serious: No
  Sender: FDA-Public Use
  Company Number: US-PFIZER INC-2008023338

PATIENT
  Age: 78 Year
  Sex: Female
  Weight: 68.181 kg

DRUGS (2)
  1. AROMASIN [Suspect]
     Indication: BREAST LUMP REMOVAL
  2. MACRODANTIN [Concomitant]

REACTIONS (1)
  - ARTHRALGIA [None]
